FAERS Safety Report 17261205 (Version 1)
Quarter: 2020Q1

REPORT INFORMATION
  Report Type: Spontaneous
  Country: NL (occurrence: NL)
  Receive Date: 20200113
  Receipt Date: 20200113
  Transmission Date: 20200409
  Serious: Yes (Other)
  Sender: FDA-Public Use
  Company Number: NL-UCBSA-2020000844

PATIENT
  Sex: Female

DRUGS (2)
  1. DEPAKENE [VALPROATE SODIUM] [Suspect]
     Active Substance: VALPROATE SODIUM
     Indication: PRODUCT USED FOR UNKNOWN INDICATION
     Dosage: HIGH DOSE
     Route: 048
     Dates: end: 201909
  2. VIMPAT [Suspect]
     Active Substance: LACOSAMIDE
     Indication: EPILEPSY
     Dosage: 200 MILLIGRAM, 2X/DAY (BID)

REACTIONS (4)
  - Paraesthesia [Unknown]
  - Hypoaesthesia oral [Unknown]
  - Thrombocytopenia [Unknown]
  - Paraesthesia oral [Unknown]
